FAERS Safety Report 18278704 (Version 2)
Quarter: 2020Q4

REPORT INFORMATION
  Report Type: Spontaneous
  Country: US (occurrence: US)
  Receive Date: 20200917
  Receipt Date: 20201001
  Transmission Date: 20210113
  Serious: No
  Sender: FDA-Public Use
  Company Number: US-009507513-2009USA005542

PATIENT
  Age: 16 Year
  Sex: Female
  Weight: 52.79 kg

DRUGS (1)
  1. NEXPLANON [Suspect]
     Active Substance: ETONOGESTREL
     Indication: CONTRACEPTION
     Dosage: 1 DOSAGE FORM, LEFT ARM
     Route: 059
     Dates: start: 20200117, end: 20200911

REACTIONS (4)
  - Implant site abscess [Recovered/Resolved]
  - Arthropod bite [Recovered/Resolved]
  - Implant site infection [Recovered/Resolved]
  - Implant site induration [Recovered/Resolved]

NARRATIVE: CASE EVENT DATE: 20200709
